FAERS Safety Report 8338636-8 (Version None)
Quarter: 2012Q2

REPORT INFORMATION
  Report Type: 
  Country: None (occurrence: None)
  Receive Date: 20120504
  Receipt Date: 20120427
  Transmission Date: 20120825
  Serious: Yes (Other)
  Sender: FDA-Public Use
  Company Number: US-ASTRAZENECA-2012SE27781

PATIENT
  Age: 50 Year
  Sex: Male
  Weight: 108 kg

DRUGS (9)
  1. CRESTOR [Suspect]
     Route: 048
     Dates: start: 20110101
  2. LOVASA (FISH OIL) [Concomitant]
  3. FLUTICASONE PROPIONATE [Concomitant]
     Dosage: TWO SPRAYS EVERY DAY
  4. CRESTOR [Suspect]
     Indication: BLOOD CHOLESTEROL INCREASED
     Route: 048
  5. SINGULAIR [Concomitant]
  6. ASPIRIN [Concomitant]
     Dosage: HS
  7. LEVOTHYROXINE SODIUM [Concomitant]
  8. DIOVAN [Concomitant]
     Indication: HYPERTENSION
  9. VENTOLIN HFA [Concomitant]
     Dosage: TWO PUFFS  PRN

REACTIONS (4)
  - VENTRICULAR EXTRASYSTOLES [None]
  - PALPITATIONS [None]
  - FATIGUE [None]
  - LUNG DISORDER [None]
